FAERS Safety Report 5991012-5 (Version None)
Quarter: 2008Q4

REPORT INFORMATION
  Report Type: 
  Country: None (occurrence: None)
  Receive Date: 20081211
  Receipt Date: 20081208
  Transmission Date: 20090506
  Serious: Yes (Other)
  Sender: FDA-Public Use
  Company Number: US-MERCK-0809USA02509

PATIENT
  Age: 11 Year
  Sex: Male
  Weight: 51 kg

DRUGS (6)
  1. SINGULAIR [Suspect]
     Indication: ASTHMA
     Route: 048
     Dates: start: 20080301, end: 20080721
  2. SINGULAIR [Suspect]
     Indication: RHINITIS ALLERGIC
     Route: 048
     Dates: start: 20080301, end: 20080721
  3. FLOVENT [Concomitant]
     Indication: ASTHMA
     Dates: start: 20080501
  4. ALBUTEROL [Concomitant]
     Route: 065
  5. XOPENEX [Concomitant]
     Indication: ASTHMA
     Dates: start: 20080301
  6. ALAVERT [Concomitant]
     Indication: HYPERSENSITIVITY
     Route: 048
     Dates: start: 20080301

REACTIONS (2)
  - ABNORMAL BEHAVIOUR [None]
  - SUICIDAL IDEATION [None]
